FAERS Safety Report 6421912-3 (Version None)
Quarter: 2009Q4

REPORT INFORMATION
  Report Type: 
  Country: None (occurrence: None)
  Receive Date: 20091030
  Receipt Date: 20091020
  Transmission Date: 20100525
  Serious: No
  Sender: FDA-Public Use
  Company Number: B0599404A

PATIENT
  Age: 6 Year
  Sex: Male

DRUGS (1)
  1. RELENZA [Suspect]
     Indication: INFLUENZA
     Dosage: 40MG PER DAY
     Route: 055
     Dates: start: 20091020, end: 20091020

REACTIONS (1)
  - OVERDOSE [None]
